FAERS Safety Report 8209359-0 (Version None)
Quarter: 2012Q1

REPORT INFORMATION
  Report Type: 
  Country: None (occurrence: None)
  Receive Date: 20120314
  Receipt Date: 20120307
  Transmission Date: 20120608
  Serious: Yes (Other)
  Sender: FDA-Public Use
  Company Number: US-BAYER-2012-023574

PATIENT
  Age: 51 Year
  Sex: Female

DRUGS (6)
  1. BENICAR [Concomitant]
  2. PROTONIX [Concomitant]
  3. AYGESTIN [Concomitant]
     Indication: MENORRHAGIA
     Dosage: UNK
  4. CALCIUM SUPPLEMENTS [Concomitant]
  5. ZYRTEC [Concomitant]
  6. YAZ [Suspect]
     Indication: HAEMORRHAGIC DIATHESIS

REACTIONS (1)
  - DEEP VEIN THROMBOSIS [None]
